FAERS Safety Report 10625811 (Version 1)
Quarter: 2014Q4

REPORT INFORMATION
  Report Type: Spontaneous
  Country: US (occurrence: None)
  Receive Date: 20141121
  Receipt Date: 20141121
  Transmission Date: 20150529
  Serious: No
  Sender: FDA-Public Use
  Company Number: 163-10004-14082279

PATIENT
  Age: 65 Year
  Sex: Female

DRUGS (6)
  1. ALEVE (NAPROXEN SODIUM) [Concomitant]
  2. ASPIRIN. [Concomitant]
     Active Substance: ASPIRIN
  3. CALCIUM + D (CALCIUM WITH VITAMIN D) [Concomitant]
  4. PERCOCET (OXYCOCET) [Concomitant]
  5. OTEZLA [Suspect]
     Active Substance: APREMILAST
     Indication: PSORIATIC ARTHROPATHY
     Route: 048
     Dates: start: 201406
  6. VITAMIN A (RETINOL) [Concomitant]

REACTIONS (1)
  - Rash [None]

NARRATIVE: CASE EVENT DATE: 20140811
